FAERS Safety Report 9529695 (Version 4)
Quarter: 2013Q4

REPORT INFORMATION
  Report Type: Spontaneous
  Country: US (occurrence: US)
  Receive Date: 20130917
  Receipt Date: 20131104
  Transmission Date: 20140711
  Serious: Yes (Hospitalization)
  Sender: FDA-Public Use
  Company Number: US-GLAXOSMITHKLINE-A1041793A

PATIENT
  Age: 27 Year
  Sex: Male

DRUGS (3)
  1. FLOLAN [Suspect]
     Indication: PULMONARY ARTERIAL HYPERTENSION
     Dosage: 45NGKM CONTINUOUS
     Route: 042
     Dates: start: 20130808
  2. LETAIRIS [Concomitant]
  3. COUMADIN [Concomitant]

REACTIONS (4)
  - Arteriovenous malformation [Recovered/Resolved]
  - Haemoptysis [Recovered/Resolved]
  - Syncope [Recovered/Resolved]
  - Hospitalisation [Recovered/Resolved]
